FAERS Safety Report 20436509 (Version 2)
Quarter: 2022Q1

REPORT INFORMATION
  Report Type: Spontaneous
  Country: US (occurrence: US)
  Receive Date: 20220207
  Receipt Date: 20220211
  Transmission Date: 20220423
  Serious: Yes (Death)
  Sender: FDA-Public Use
  Company Number: US-JNJFOC-20220161607

PATIENT
  Age: 32 Year
  Sex: Female

DRUGS (1)
  1. SPRAVATO [Suspect]
     Active Substance: ESKETAMINE
     Indication: Depression
     Dosage: 1-2X PER WEEK FOR 3-4 MONTHS
     Dates: start: 2021

REACTIONS (3)
  - Suspected suicide [Fatal]
  - Alcohol use [Fatal]
  - Depression [Unknown]

NARRATIVE: CASE EVENT DATE: 20211201
